FAERS Safety Report 10752052 (Version 1)
Quarter: 2015Q1

REPORT INFORMATION
  Report Type: Spontaneous
  Country: FR (occurrence: FR)
  Receive Date: 20150130
  Receipt Date: 20150130
  Transmission Date: 20150721
  Serious: Yes (Hospitalization, Other)
  Sender: FDA-Public Use
  Company Number: FR-ASTRAZENECA-2014SE48792

PATIENT
  Age: 43 Year
  Sex: Female
  Weight: 49 kg

DRUGS (9)
  1. RISPERDAL [Concomitant]
     Active Substance: RISPERIDONE
  2. XEROQUEL [Suspect]
     Active Substance: QUETIAPINE FUMARATE
     Indication: AFFECTIVE DISORDER
     Dosage: DOSE PROGRESSIVELY INCREASED FROM 400 MG TO 1 GRAM PER DAY
     Route: 048
     Dates: start: 20121012, end: 20130412
  3. XEROQUEL [Suspect]
     Active Substance: QUETIAPINE FUMARATE
     Indication: PSYCHOTIC DISORDER
     Dosage: DOSE PROGRESSIVELY INCREASED FROM 400 MG TO 1 GRAM PER DAY
     Route: 048
     Dates: start: 20121012, end: 20130412
  4. XEROQUEL [Suspect]
     Active Substance: QUETIAPINE FUMARATE
     Indication: AFFECTIVE DISORDER
     Dosage: DOSE PROGRESSIVELY DECREASED FROM 1 G TO 400 MG PER DAY
     Route: 048
     Dates: start: 201310, end: 20140117
  5. XEROQUEL [Suspect]
     Active Substance: QUETIAPINE FUMARATE
     Indication: PSYCHOTIC DISORDER
     Dosage: DOSE PROGRESSIVELY DECREASED FROM 1 G TO 400 MG PER DAY
     Route: 048
     Dates: start: 201310, end: 20140117
  6. TERCIAN [Concomitant]
     Active Substance: CYAMEMAZINE
     Indication: ANXIETY
     Dates: start: 20070323, end: 20130111
  7. XEROQUEL [Suspect]
     Active Substance: QUETIAPINE FUMARATE
     Indication: AFFECTIVE DISORDER
     Route: 048
     Dates: start: 20130413, end: 201310
  8. PROTHIADEN [Concomitant]
     Active Substance: DOTHIEPIN HYDROCHLORIDE
     Indication: DEPRESSION
     Dates: start: 20060324
  9. XEROQUEL [Suspect]
     Active Substance: QUETIAPINE FUMARATE
     Indication: PSYCHOTIC DISORDER
     Route: 048
     Dates: start: 20130413, end: 201310

REACTIONS (4)
  - Diabetes mellitus [Recovering/Resolving]
  - Delirium [Recovered/Resolved]
  - Urinary retention [Recovered/Resolved]
  - Off label use [Recovered/Resolved]

NARRATIVE: CASE EVENT DATE: 201301
